FAERS Safety Report 18260097 (Version 1)
Quarter: 2020Q3

REPORT INFORMATION
  Report Type: Spontaneous
  Country: US (occurrence: US)
  Receive Date: 20200913
  Receipt Date: 20200913
  Transmission Date: 20201103
  Serious: Yes (Other)
  Sender: FDA-Public Use
  Company Number: US-STRIDES ARCOLAB LIMITED-2019SP011318

PATIENT
  Age: 66 Year
  Sex: Female

DRUGS (2)
  1. TACROLIMUS. [Suspect]
     Active Substance: TACROLIMUS
     Indication: IMMUNOSUPPRESSANT DRUG THERAPY
     Dosage: UNK
     Route: 065
  2. TACROLIMUS. [Suspect]
     Active Substance: TACROLIMUS
     Indication: LUNG TRANSPLANT
     Dosage: HIGHER DOSE
     Route: 065

REACTIONS (8)
  - Chronic kidney disease [Unknown]
  - Acidosis [Unknown]
  - Blood creatinine increased [Unknown]
  - Off label use [Unknown]
  - Proteinuria [Unknown]
  - Lung transplant rejection [Unknown]
  - Osteoporosis [Unknown]
  - Toxicity to various agents [Unknown]
